FAERS Safety Report 16032488 (Version 1)
Quarter: 2019Q1

REPORT INFORMATION
  Report Type: Spontaneous
  Country: US (occurrence: US)
  Receive Date: 20190304
  Receipt Date: 20190304
  Transmission Date: 20190418
  Serious: Yes (Other)
  Sender: FDA-Public Use
  Company Number: US-MYLANLABS-2019M1016300

PATIENT

DRUGS (1)
  1. ATORVASTATIN CALCIUM TABLETS [Suspect]
     Active Substance: ATORVASTATIN CALCIUM
     Indication: BLOOD CHOLESTEROL ABNORMAL
     Dosage: UNK
     Route: 048

REACTIONS (6)
  - Abdominal distension [Recovered/Resolved]
  - Internal haemorrhage [Recovered/Resolved]
  - Gluten sensitivity [Unknown]
  - Weight decreased [Unknown]
  - Rectal haemorrhage [Recovered/Resolved]
  - Gastrointestinal inflammation [Recovered/Resolved]
